FAERS Safety Report 24527355 (Version 1)
Quarter: 2024Q4

REPORT INFORMATION
  Report Type: Spontaneous
  Country: CN (occurrence: CN)
  Receive Date: 20241021
  Receipt Date: 20241021
  Transmission Date: 20250114
  Serious: Yes (Hospitalization)
  Sender: JIANGSU HANSOH PHARMACEUTICAL
  Company Number: CN-Jiangsu Hansoh Pharmaceutical Co., Ltd-2163431

PATIENT
  Age: 71 Year
  Sex: Male
  Weight: 51 kg

DRUGS (1)
  1. PEMETREXED [Suspect]
     Active Substance: PEMETREXED
     Indication: Lung neoplasm malignant
     Dates: start: 20240920, end: 20240920

REACTIONS (7)
  - Mouth ulceration [Recovering/Resolving]
  - Listless [Unknown]
  - Eating disorder [Unknown]
  - Asthenia [Recovering/Resolving]
  - Weight decreased [Recovering/Resolving]
  - Pharyngeal swelling [Recovering/Resolving]
  - Laryngeal pain [Recovering/Resolving]

NARRATIVE: CASE EVENT DATE: 20240930
